FAERS Safety Report 13598893 (Version 2)
Quarter: 2017Q2

REPORT INFORMATION
  Report Type: Spontaneous
  Country: US (occurrence: US)
  Receive Date: 20170531
  Receipt Date: 20170620
  Transmission Date: 20170830
  Serious: Yes (Hospitalization, Other)
  Sender: FDA-Public Use
  Company Number: US-PFIZER INC-2017234480

PATIENT
  Age: 50 Year
  Sex: Female

DRUGS (2)
  1. CELEBREX [Suspect]
     Active Substance: CELECOXIB
     Indication: OSTEOARTHRITIS
     Dosage: 200 MG, 2X/DAY
     Dates: start: 2002
  2. NEURONTIN [Suspect]
     Active Substance: GABAPENTIN
     Indication: PAIN
     Dosage: UNK
     Dates: start: 20010505, end: 20170509

REACTIONS (8)
  - Cerebrovascular accident [Recovered/Resolved]
  - Arterial occlusive disease [Recovered/Resolved]
  - Disease recurrence [Recovered/Resolved]
  - Disease recurrence [Recovered/Resolved]
  - Disease recurrence [Recovered/Resolved]
  - Prescribed overdose [Unknown]
  - Myocardial infarction [Recovered/Resolved]
  - Amnesia [Not Recovered/Not Resolved]

NARRATIVE: CASE EVENT DATE: 2002
